FAERS Safety Report 12610934 (Version 3)
Quarter: 2016Q3

REPORT INFORMATION
  Report Type: Spontaneous
  Country: BR (occurrence: BR)
  Receive Date: 20160801
  Receipt Date: 20160811
  Transmission Date: 20161109
  Serious: Yes (Hospitalization)
  Sender: FDA-Public Use
  Company Number: BR-SA-2016SA133282

PATIENT
  Age: 46 Year
  Sex: Female
  Weight: 98 kg

DRUGS (18)
  1. CLIKSTAR [Suspect]
     Active Substance: CLIKSTAR
     Indication: TYPE 2 DIABETES MELLITUS
     Dosage: START: 2-3 MONTHS AGO
     Dates: start: 2016
  2. SPIRONOLACTONE. [Concomitant]
     Active Substance: SPIRONOLACTONE
     Indication: BLOOD PRESSURE MEASUREMENT
     Route: 048
     Dates: start: 2014
  3. RIVOTRIL [Concomitant]
     Active Substance: CLONAZEPAM
     Indication: SLEEP DISORDER
     Route: 048
     Dates: start: 2014
  4. RIVOTRIL [Concomitant]
     Active Substance: CLONAZEPAM
     Indication: ANXIETY
     Route: 048
     Dates: start: 2014
  5. AAS [Concomitant]
     Active Substance: ASPIRIN
     Indication: COAGULOPATHY
     Route: 048
     Dates: start: 2013
  6. CHLORTALIDONE [Concomitant]
     Active Substance: CHLORTHALIDONE
     Indication: BLOOD PRESSURE MEASUREMENT
     Route: 048
     Dates: start: 2014
  7. URSACOL [Concomitant]
     Active Substance: URSODIOL
     Indication: LIVER DISORDER
     Dosage: DOSE:3 TABLETS BEFORE THE LUNCH, AND 2 TABLETS BEFORE THE DINNER
     Route: 048
     Dates: start: 2015
  8. DIGESAN [Concomitant]
     Active Substance: BROMOPRIDE
     Indication: GASTRIC DISORDER
     Route: 048
     Dates: start: 2014
  9. PURAN [Concomitant]
     Active Substance: LEVOTHYROXINE SODIUM
     Indication: HYPOTHYROIDISM
     Route: 048
     Dates: start: 2015
  10. METFORMIN HYDROCHLORIDE. [Concomitant]
     Active Substance: METFORMIN HYDROCHLORIDE
     Indication: DIABETES MELLITUS
     Route: 048
     Dates: start: 2006
  11. LANTUS [Suspect]
     Active Substance: INSULIN GLARGINE
     Indication: TYPE 2 DIABETES MELLITUS
     Route: 058
     Dates: start: 2016
  12. FLUOXETINE HYDROCHLORIDE. [Concomitant]
     Active Substance: FLUOXETINE HYDROCHLORIDE
     Indication: ANXIETY
     Route: 048
     Dates: start: 2014
  13. LOSARTAN POTASSIUM. [Concomitant]
     Active Substance: LOSARTAN POTASSIUM
     Indication: BLOOD PRESSURE MEASUREMENT
     Route: 048
     Dates: start: 2014
  14. BUDESONIDE. [Concomitant]
     Active Substance: BUDESONIDE
     Indication: LIVER DISORDER
     Route: 048
     Dates: start: 2015
  15. OMEPRAZOLE. [Concomitant]
     Active Substance: OMEPRAZOLE
     Indication: GASTRIC DISORDER
     Route: 048
     Dates: start: 2014
  16. FERROUS SULFATE. [Concomitant]
     Active Substance: FERROUS SULFATE
     Indication: PERNICIOUS ANAEMIA
     Dosage: DOSE:1 TABLET BEFORE THE BREAKFAST, 2 TABLETS BEFORE THE LUNCH AND 1 TABLET BEFORE THE DINNER
     Route: 048
     Dates: start: 2014
  17. VENLAFAXINE HYDROCHLORIDE. [Concomitant]
     Active Substance: VENLAFAXINE HYDROCHLORIDE
     Indication: MUSCLE RELAXANT THERAPY
     Route: 048
     Dates: start: 2015
  18. SIMVASTATIN. [Concomitant]
     Active Substance: SIMVASTATIN
     Indication: PROPHYLAXIS
     Route: 048
     Dates: start: 2013

REACTIONS (4)
  - Blood glucose increased [Unknown]
  - Device use issue [Unknown]
  - Diabetes mellitus [Recovered/Resolved]
  - Biliary cirrhosis [Recovered/Resolved]

NARRATIVE: CASE EVENT DATE: 2016
